FAERS Safety Report 20906577 (Version 2)
Quarter: 2022Q2

REPORT INFORMATION
  Report Type: Spontaneous
  Country: US (occurrence: US)
  Receive Date: 20220602
  Receipt Date: 20220616
  Transmission Date: 20220721
  Serious: Yes (Other)
  Sender: FDA-Public Use
  Company Number: US-PFIZER INC-202200542508

PATIENT
  Age: 61 Year
  Sex: Male

DRUGS (1)
  1. VFEND [Suspect]
     Active Substance: VORICONAZOLE
     Dosage: 400 MG, 2X/DAY (TAKE TWO 200 MG TABLETS TWICE DAILY)

REACTIONS (3)
  - Hallucination [Unknown]
  - Drug hypersensitivity [Unknown]
  - Prescribed overdose [Unknown]
